FAERS Safety Report 20024541 (Version 2)
Quarter: 2021Q4

REPORT INFORMATION
  Report Type: Spontaneous
  Country: IT (occurrence: None)
  Receive Date: 20211102
  Receipt Date: 20211105
  Transmission Date: 20220303
  Serious: Yes (Hospitalization)
  Sender: FDA-Public Use
  Company Number: 2021A783942

PATIENT
  Age: 58 Year
  Sex: Male

DRUGS (7)
  1. TICAGRELOR [Suspect]
     Active Substance: TICAGRELOR
     Indication: Platelet aggregation inhibition
     Route: 048
     Dates: start: 20181001, end: 20211013
  2. ASPIRIN [Suspect]
     Active Substance: ASPIRIN
     Indication: Platelet aggregation inhibition
     Route: 048
     Dates: start: 20181001, end: 20211013
  3. NIMESULIDE [Suspect]
     Active Substance: NIMESULIDE
     Indication: Pain
     Route: 048
     Dates: start: 20211010, end: 20211013
  4. METFORMIN [Concomitant]
     Active Substance: METFORMIN HYDROCHLORIDE
  5. BISOPROLOL [Concomitant]
     Active Substance: BISOPROLOL
  6. ENTRESTO [Concomitant]
     Active Substance: SACUBITRIL\VALSARTAN
     Dosage: 24/26
  7. OMEPRAZOLE [Concomitant]
     Active Substance: OMEPRAZOLE

REACTIONS (3)
  - Anaemia [Recovering/Resolving]
  - Gastric ulcer [Recovering/Resolving]
  - Melaena [Recovering/Resolving]

NARRATIVE: CASE EVENT DATE: 20211013
